FAERS Safety Report 5280183-4 (Version None)
Quarter: 2007Q1

REPORT INFORMATION
  Report Type: 
  Country: None (occurrence: None)
  Receive Date: 20070326
  Receipt Date: 20070326
  Transmission Date: 20070707
  Serious: Yes (Death)
  Sender: FDA-Public Use
  Company Number: None

PATIENT
  Age: 87 Year
  Sex: Female
  Weight: 81.1939 kg

DRUGS (1)
  1. ALLOPURINOL [Suspect]
     Indication: GOUT
     Dosage: 300MG DAILY PO
     Route: 048
     Dates: start: 20060317, end: 20060928

REACTIONS (1)
  - APLASTIC ANAEMIA [None]
